FAERS Safety Report 10658154 (Version 1)
Quarter: 2014Q4

REPORT INFORMATION
  Report Type: Spontaneous
  Country: US (occurrence: None)
  Receive Date: 20141205
  Receipt Date: 20141205
  Transmission Date: 20150529
  Serious: Yes (Other)
  Sender: FDA-Public Use
  Company Number: 163-POMAL-14085420

PATIENT
  Age: 64 Year
  Sex: Female
  Weight: 87.5 kg

DRUGS (11)
  1. POMALYST [Suspect]
     Active Substance: POMALIDOMIDE
     Indication: PLASMA CELL MYELOMA
     Dosage: 2 MG, 21 IN 21 D
     Route: 048
     Dates: start: 20140619, end: 2014
  2. FERROUS SULFATE [Concomitant]
     Active Substance: FERROUS SULFATE\FERROUS SULFATE, DRIED
  3. MULTIVITAMINS(MULTIVITAMINS) [Concomitant]
  4. LASIX(FUROSEMIDE) [Concomitant]
  5. LORTAB(VICODIN) [Concomitant]
  6. BACTRIM [Concomitant]
     Active Substance: SULFAMETHOXAZOLE\TRIMETHOPRIM
  7. LIDOCAINE. [Concomitant]
     Active Substance: LIDOCAINE
  8. TEMAZEPAM(TEMAZEPAM) [Concomitant]
  9. COUMADIN [Concomitant]
     Active Substance: WARFARIN SODIUM
  10. ZOFRAN(ONDANSETRON HYDROCHLORIDE) [Concomitant]
  11. POTASSIUM [Concomitant]
     Active Substance: POTASSIUM

REACTIONS (3)
  - Red blood cell count decreased [None]
  - Alopecia [None]
  - White blood cell count decreased [None]

NARRATIVE: CASE EVENT DATE: 2014
